FAERS Safety Report 14576119 (Version 1)
Quarter: 2018Q1

REPORT INFORMATION
  Report Type: Spontaneous
  Country: US (occurrence: US)
  Receive Date: 20180227
  Receipt Date: 20180227
  Transmission Date: 20180509
  Serious: Yes (Other)
  Sender: FDA-Public Use
  Company Number: US-ROCHE-2079159

PATIENT
  Age: 15 Year
  Sex: Male

DRUGS (1)
  1. CATHFLO ACTIVASE [Suspect]
     Active Substance: ALTEPLASE
     Indication: PLEURAL EFFUSION
     Route: 050
     Dates: start: 20180127, end: 20180201

REACTIONS (6)
  - Gangrene [Unknown]
  - Off label use [Unknown]
  - Intentional product use issue [Unknown]
  - Acute respiratory failure [Unknown]
  - Hypoxia [Unknown]
  - Pulmonary necrosis [Unknown]

NARRATIVE: CASE EVENT DATE: 20180127
